FAERS Safety Report 8344247-0 (Version None)
Quarter: 2012Q2

REPORT INFORMATION
  Report Type: 
  Country: None (occurrence: None)
  Receive Date: 20120508
  Receipt Date: 20080724
  Transmission Date: 20120825
  Serious: No
  Sender: FDA-Public Use
  Company Number: US-TEVA-US024180

PATIENT
  Age: 95 Year

DRUGS (1)
  1. TREANDA [Suspect]
     Indication: NEOPLASM MALIGNANT
     Dosage: SIXTH LINE
     Route: 042

REACTIONS (1)
  - PLATELET COUNT DECREASED [None]
